FAERS Safety Report 14387727 (Version 1)
Quarter: 2018Q1

REPORT INFORMATION
  Report Type: Spontaneous
  Country: US (occurrence: US)
  Receive Date: 20180115
  Receipt Date: 20180115
  Transmission Date: 20180509
  Serious: Yes (Other)
  Sender: FDA-Public Use
  Company Number: US-SA-2017SA185263

PATIENT
  Age: 52 Year
  Sex: Female
  Weight: 104.32 kg

DRUGS (7)
  1. TAXOTERE [Suspect]
     Active Substance: DOCETAXEL
     Dosage: 60-80 MG/M2
     Route: 051
     Dates: start: 20070323, end: 20070323
  2. CISPLATIN. [Concomitant]
     Active Substance: CISPLATIN
  3. CARBOPLATIN. [Concomitant]
     Active Substance: CARBOPLATIN
  4. DEXAMETHASONE. [Concomitant]
     Active Substance: DEXAMETHASONE
  5. TAXOTERE [Concomitant]
     Active Substance: DOCETAXEL
  6. TAXOTERE [Suspect]
     Active Substance: DOCETAXEL
     Dosage: 60-80 MG/M2
     Route: 051
     Dates: start: 20060501, end: 20060501
  7. PACLITAXEL. [Concomitant]
     Active Substance: PACLITAXEL

REACTIONS (2)
  - Psychological trauma [Unknown]
  - Alopecia [Not Recovered/Not Resolved]

NARRATIVE: CASE EVENT DATE: 20071118
